FAERS Safety Report 24675297 (Version 1)
Quarter: 2024Q4

REPORT INFORMATION
  Report Type: Spontaneous
  Country: CN (occurrence: CN)
  Receive Date: 20241128
  Receipt Date: 20241128
  Transmission Date: 20250115
  Serious: Yes (Other)
  Sender: NOVARTIS
  Company Number: CN-002147023-NVSC2024CN227930

PATIENT
  Age: 78 Year
  Sex: Female

DRUGS (1)
  1. CARBAMAZEPINE [Suspect]
     Active Substance: CARBAMAZEPINE
     Indication: Trigeminal neuralgia
     Dosage: 200 MG, BID
     Route: 041
     Dates: start: 20241113, end: 20241114

REACTIONS (5)
  - Dizziness [Recovering/Resolving]
  - Somnolence [Recovering/Resolving]
  - Listless [Recovering/Resolving]
  - Feeling abnormal [Recovering/Resolving]
  - Lethargy [Recovering/Resolving]

NARRATIVE: CASE EVENT DATE: 20241114
